FAERS Safety Report 7150309-6 (Version None)
Quarter: 2010Q4

REPORT INFORMATION
  Report Type: 
  Country: None (occurrence: None)
  Receive Date: 20101123
  Receipt Date: 20101014
  Transmission Date: 20110411
  Serious: No
  Sender: FDA-Public Use
  Company Number: 020407

PATIENT
  Sex: Female

DRUGS (1)
  1. CIMZIA [Suspect]
     Dosage: SUBCUTANEOUS
     Route: 058
     Dates: start: 20100701, end: 20100903

REACTIONS (3)
  - LOCALISED INFECTION [None]
  - MIDDLE EAR EFFUSION [None]
  - SINUSITIS [None]
